FAERS Safety Report 14445025 (Version 2)
Quarter: 2018Q1

REPORT INFORMATION
  Report Type: Spontaneous
  Country: US (occurrence: US)
  Receive Date: 20180126
  Receipt Date: 20180307
  Transmission Date: 20180509
  Serious: No
  Sender: FDA-Public Use
  Company Number: US-PFIZER INC-2018032382

PATIENT
  Age: 9 Year
  Sex: Male

DRUGS (1)
  1. CLINDAMYCIN. [Suspect]
     Active Substance: CLINDAMYCIN
     Indication: MOUTH CYST
     Dosage: UNK (75 MG/5 ML X 100 ML)
     Route: 048

REACTIONS (2)
  - Product odour abnormal [Unknown]
  - Dysgeusia [Unknown]
